FAERS Safety Report 25943474 (Version 1)
Quarter: 2025Q4

REPORT INFORMATION
  Report Type: Report from Study
  Country: US (occurrence: US)
  Receive Date: 20251021
  Receipt Date: 20251021
  Transmission Date: 20260118
  Serious: Yes (Other)
  Sender: ABBVIE
  Company Number: US-ABBVIE-6504331

PATIENT
  Age: 68 Year
  Sex: Female

DRUGS (1)
  1. RINVOQ [Suspect]
     Active Substance: UPADACITINIB
     Indication: Crohn^s disease
     Route: 048
     Dates: start: 20241224

REACTIONS (5)
  - Colostomy [Unknown]
  - Rectal stenosis [Not Recovered/Not Resolved]
  - Inflammation [Unknown]
  - Fistula [Unknown]
  - Hernia [Unknown]

NARRATIVE: CASE EVENT DATE: 20250101
